FAERS Safety Report 15866943 (Version 1)
Quarter: 2019Q1

REPORT INFORMATION
  Report Type: Spontaneous
  Country: US (occurrence: US)
  Receive Date: 20190124
  Receipt Date: 20190124
  Transmission Date: 20190417
  Serious: No
  Sender: FDA-Public Use
  Company Number: None

PATIENT
  Age: 48 Year
  Sex: Male
  Weight: 108 kg

DRUGS (11)
  1. SUMVASTATIN [Concomitant]
  2. INVOKANA [Concomitant]
     Active Substance: CANAGLIFLOZIN
  3. LOSARTAN. [Concomitant]
     Active Substance: LOSARTAN
  4. LEVOTHYROXINE. [Concomitant]
     Active Substance: LEVOTHYROXINE
  5. BABY ASPIRIN [Concomitant]
     Active Substance: ASPIRIN
  6. RISPERIDONE. [Concomitant]
     Active Substance: RISPERIDONE
  7. DIVALPROEX SODIUM ER [Concomitant]
     Active Substance: DIVALPROEX SODIUM
  8. METFORMIN [Concomitant]
     Active Substance: METFORMIN HYDROCHLORIDE
  9. MULTIVITAMIN [Concomitant]
     Active Substance: VITAMINS
  10. BYDUREON BCISE [Suspect]
     Active Substance: EXENATIDE
     Indication: TYPE 2 DIABETES MELLITUS
     Dosage: ?          QUANTITY:0.85 MILLILITER;OTHER FREQUENCY:ONCE A WEEK;?
     Route: 058
     Dates: start: 20181001, end: 20190120
  11. METOPROLOL. [Concomitant]
     Active Substance: METOPROLOL

REACTIONS (3)
  - Injection site pruritus [None]
  - Injection site erythema [None]
  - Livedo reticularis [None]

NARRATIVE: CASE EVENT DATE: 20190122
